FAERS Safety Report 14415035 (Version 1)
Quarter: 2018Q1

REPORT INFORMATION
  Report Type: Spontaneous
  Country: US (occurrence: US)
  Receive Date: 20180118
  Receipt Date: 20180118
  Transmission Date: 20180509
  Serious: Yes (Hospitalization)
  Sender: FDA-Public Use
  Company Number: None

PATIENT
  Age: 74 Year
  Sex: Male
  Weight: 51.71 kg

DRUGS (2)
  1. ASPIRIN. [Suspect]
     Active Substance: ASPIRIN
     Route: 048
     Dates: start: 20171103, end: 20171112
  2. APIXABAN [Suspect]
     Active Substance: APIXABAN
     Indication: ATRIAL FIBRILLATION
     Dosage: OTHER
     Dates: start: 20171010, end: 20171112

REACTIONS (7)
  - Rectal haemorrhage [None]
  - Diarrhoea [None]
  - Hypotension [None]
  - Constipation [None]
  - Proctalgia [None]
  - Gastrointestinal haemorrhage [None]
  - Productive cough [None]

NARRATIVE: CASE EVENT DATE: 20171112
